FAERS Safety Report 15161006 (Version 1)
Quarter: 2018Q3

REPORT INFORMATION
  Report Type: Report from Study
  Country: CA (occurrence: CA)
  Receive Date: 20180718
  Receipt Date: 20180718
  Transmission Date: 20181010
  Serious: Yes (Other)
  Sender: FDA-Public Use
  Company Number: CA-JAZZ-2018-CA-007246

PATIENT
  Age: 28 Year
  Sex: Female

DRUGS (3)
  1. XYREM [Suspect]
     Active Substance: SODIUM OXYBATE
     Dosage: 4.5 G, BID
     Route: 048
     Dates: start: 201604
  2. XYREM [Suspect]
     Active Substance: SODIUM OXYBATE
     Dosage: 3 G, BID
     Route: 048
     Dates: start: 20160121, end: 201604
  3. XYREM [Suspect]
     Active Substance: SODIUM OXYBATE
     Indication: CATAPLEXY
     Dosage: 2.25 G, BID
     Route: 048
     Dates: start: 201512, end: 201601

REACTIONS (7)
  - Narcolepsy [Unknown]
  - Skin disorder [Not Recovered/Not Resolved]
  - Dry eye [Not Recovered/Not Resolved]
  - Constipation [Not Recovered/Not Resolved]
  - Suicidal ideation [Unknown]
  - Muscular weakness [Not Recovered/Not Resolved]
  - Animal bite [Unknown]

NARRATIVE: CASE EVENT DATE: 201512
